FAERS Safety Report 24647027 (Version 1)
Quarter: 2024Q4

REPORT INFORMATION
  Report Type: Spontaneous
  Country: UA (occurrence: UA)
  Receive Date: 20241121
  Receipt Date: 20241121
  Transmission Date: 20250115
  Serious: Yes (Other)
  Sender: RANBAXY
  Company Number: UA-SUN PHARMACEUTICAL INDUSTRIES LTD-2024R1-480071

PATIENT
  Age: 39 Year
  Sex: Female

DRUGS (1)
  1. NOREPINEPHRINE [Suspect]
     Active Substance: NOREPINEPHRINE\NOREPINEPHRINE BITARTRATE
     Indication: Hypotension
     Dosage: UNK (0.8 ?G/KG/MIN)
     Route: 065

REACTIONS (1)
  - Pericardial rupture [Recovered/Resolved]
